FAERS Safety Report 25742774 (Version 1)
Quarter: 2025Q3

REPORT INFORMATION
  Report Type: Spontaneous
  Country: IL (occurrence: IL)
  Receive Date: 20250830
  Receipt Date: 20250830
  Transmission Date: 20251020
  Serious: Yes (Life-Threatening, Other)
  Sender: TEVA
  Company Number: IL-TEVA-VS-3365606

PATIENT
  Age: 32 Year
  Sex: Female

DRUGS (1)
  1. AMPHETAMINE SULFATE\DEXTROAMPHETAMINE [Suspect]
     Active Substance: AMPHETAMINE SULFATE\DEXTROAMPHETAMINE
     Indication: Product used for unknown indication
     Route: 065
     Dates: start: 20211210

REACTIONS (31)
  - Alopecia [Unknown]
  - Paraesthesia [Unknown]
  - Flatulence [Unknown]
  - Weight increased [Unknown]
  - Pyrexia [Unknown]
  - Akinesia [Unknown]
  - Ataxia [Unknown]
  - Vision blurred [Unknown]
  - Skin wrinkling [Unknown]
  - Asthenia [Unknown]
  - Ear discomfort [Unknown]
  - Disturbance in attention [Unknown]
  - Muscular weakness [Unknown]
  - Dyspnoea [Unknown]
  - Arthralgia [Unknown]
  - Facial paralysis [Unknown]
  - Restlessness [Unknown]
  - Hypoaesthesia [Unknown]
  - Agitation [Unknown]
  - Facial discomfort [Unknown]
  - Dry skin [Unknown]
  - Urine abnormality [Unknown]
  - Dissociation [Unknown]
  - Feeling cold [Unknown]
  - Nasal congestion [Unknown]
  - Fatigue [Unknown]
  - Hypersensitivity [Unknown]
  - Dizziness [Unknown]
  - Aggression [Unknown]
  - Balance disorder [Unknown]
  - Cognitive disorder [Unknown]
